FAERS Safety Report 7519152-X (Version None)
Quarter: 2011Q2

REPORT INFORMATION
  Report Type: 
  Country: None (occurrence: None)
  Receive Date: 20110523
  Receipt Date: 20110510
  Transmission Date: 20111010
  Serious: Yes (Death, Hospitalization)
  Sender: FDA-Public Use
  Company Number: B0685706A

PATIENT
  Sex: Male
  Weight: 19.9583 kg

DRUGS (8)
  1. HYDROXYCHLOROQUINE SULFATE [Concomitant]
  2. NEURAMINIDASE INHIBITOR (FORMULATION UNKNOWN) (NEURAMINIDASE INHIBITOR [Suspect]
  3. RIBAVIRIN [Concomitant]
  4. AMPHOTERICIN B [Concomitant]
  5. GANCICLOVIR [Concomitant]
  6. MEROPENEM [Concomitant]
  7. RELENZA [Suspect]
     Indication: H1N1 INFLUENZA
     Dosage: 20 MG/KG / TWICE PER DAY / INTRAVENOUS
     Route: 042
     Dates: start: 20091203
  8. OSELTAMIVIR PHOSPHATE [Suspect]
     Indication: H1N1 INFLUENZA
     Dosage: 45 MG / TWICE PER DAY

REACTIONS (11)
  - DRUG LEVEL DECREASED [None]
  - CYTOMEGALOVIRUS VIRAEMIA [None]
  - RHINOVIRUS INFECTION [None]
  - MULTIPLE-DRUG RESISTANCE [None]
  - RESPIRATORY FAILURE [None]
  - ACUTE RESPIRATORY DISTRESS SYNDROME [None]
  - HYPOXIA [None]
  - PNEUMONIA VIRAL [None]
  - LOWER RESPIRATORY TRACT INFECTION [None]
  - VIRAL MUTATION IDENTIFIED [None]
  - INFECTION IN AN IMMUNOCOMPROMISED HOST [None]
